FAERS Safety Report 10787055 (Version 3)
Quarter: 2015Q2

REPORT INFORMATION
  Report Type: Spontaneous
  Country: US (occurrence: US)
  Receive Date: 20150211
  Receipt Date: 20150415
  Transmission Date: 20150821
  Serious: No
  Sender: FDA-Public Use
  Company Number: US-GLAXOSMITHKLINE-US2014036374

PATIENT
  Sex: Male

DRUGS (4)
  1. METOPROLOL [Concomitant]
     Active Substance: METOPROLOL
  2. DISOPYRAMIDE [Concomitant]
     Active Substance: DISOPYRAMIDE
  3. DIGOXIN. [Concomitant]
     Active Substance: DIGOXIN
  4. VENTOLIN HFA [Suspect]
     Active Substance: ALBUTEROL SULFATE
     Indication: ASTHMA
     Dosage: 2 PUFF(S), PRN
     Route: 055
     Dates: start: 20141120

REACTIONS (2)
  - Drug ineffective [Not Recovered/Not Resolved]
  - Product quality issue [Unknown]
